FAERS Safety Report 24734463 (Version 1)
Quarter: 2024Q4

REPORT INFORMATION
  Report Type: Spontaneous
  Country: IN (occurrence: IN)
  Receive Date: 20241214
  Receipt Date: 20241214
  Transmission Date: 20250114
  Serious: Yes (Other)
  Sender: ALKEM
  Company Number: IN-ALKEM LABORATORIES LIMITED-IN-ALKEM-2023-16525

PATIENT
  Sex: Female

DRUGS (12)
  1. MYCOPHENOLATE MOFETIL [Suspect]
     Active Substance: MYCOPHENOLATE MOFETIL
     Indication: Prophylaxis against transplant rejection
     Dosage: 750 MILLIGRAM, BID (TABLET)
     Route: 065
  2. MYCOPHENOLATE MOFETIL [Suspect]
     Active Substance: MYCOPHENOLATE MOFETIL
     Indication: Immunosuppressant drug therapy
  3. TACROLIMUS [Suspect]
     Active Substance: TACROLIMUS
     Indication: Prophylaxis against transplant rejection
     Dosage: 2.5 MILLIGRAM, BID (TABLET)
     Route: 065
  4. TACROLIMUS [Suspect]
     Active Substance: TACROLIMUS
     Indication: Immunosuppressant drug therapy
     Dosage: 2.5 MILLIGRAM, BID (CAPSULE)
     Route: 065
  5. BASILIXIMAB [Suspect]
     Active Substance: BASILIXIMAB
     Indication: Prophylaxis against transplant rejection
     Dosage: 20 MILLIGRAM ( 2 DOSES COMMENCED ON DAY 0 AND DAY 4)
     Route: 065
  6. BASILIXIMAB [Suspect]
     Active Substance: BASILIXIMAB
     Indication: Immunosuppressant drug therapy
  7. PREDNISOLONE [Suspect]
     Active Substance: PREDNISOLONE
     Indication: Prophylaxis against transplant rejection
     Dosage: 20 MILLIGRAM, OD
     Route: 065
  8. PREDNISOLONE [Suspect]
     Active Substance: PREDNISOLONE
     Indication: Immunosuppressant drug therapy
  9. RITUXIMAB [Suspect]
     Active Substance: RITUXIMAB
     Indication: Prophylaxis against transplant rejection
     Dosage: 375 MILLIGRAM/SQ. METER (WEEKLY REGIME FOR 4WEEKS FOR A TOTAL OF 4 DOSES)
     Route: 042
  10. RITUXIMAB [Suspect]
     Active Substance: RITUXIMAB
     Indication: Immunosuppressant drug therapy
  11. BETADINE [Concomitant]
     Active Substance: POVIDONE-IODINE
     Indication: Abscess
     Dosage: UNK
     Route: 065
  12. HYDROGEN PEROXIDE [Concomitant]
     Active Substance: HYDROGEN PEROXIDE
     Indication: Abscess
     Dosage: UNK (DILUTE)
     Route: 065

REACTIONS (1)
  - Aspergillus infection [Recovering/Resolving]
